FAERS Safety Report 8875788 (Version 2)
Quarter: 2012Q4

REPORT INFORMATION
  Report Type: 
  Country: US (occurrence: US)
  Receive Date: 20121030
  Receipt Date: 20121221
  Transmission Date: 20130627
  Serious: Yes (Hospitalization)
  Sender: FDA-Public Use
  Company Number: US-GLAXOSMITHKLINE-A0833526A

PATIENT
  Age: 52 Year
  Sex: Male
  Weight: 136.4 kg

DRUGS (4)
  1. AVANDAMET [Suspect]
     Indication: DIABETES MELLITUS
     Route: 048
     Dates: start: 200406, end: 200601
  2. AVANDIA [Suspect]
     Indication: TYPE 2 DIABETES MELLITUS
     Dosage: 4MG Twice per day
     Route: 048
     Dates: start: 2005
  3. ACTOPLUS MET [Concomitant]
     Dates: start: 20060127
  4. ACTOS [Concomitant]
     Dates: start: 200705

REACTIONS (8)
  - Myocardial infarction [Not Recovered/Not Resolved]
  - Cardiac failure congestive [Unknown]
  - Atrial fibrillation [Unknown]
  - Cardiac disorder [Unknown]
  - Heart rate increased [Unknown]
  - Heart rate decreased [Unknown]
  - Arrhythmia [Unknown]
  - Condition aggravated [Unknown]
